FAERS Safety Report 10518295 (Version 1)
Quarter: 2014Q4

REPORT INFORMATION
  Report Type: Spontaneous
  Country: US (occurrence: US)
  Receive Date: 20141015
  Receipt Date: 20141015
  Transmission Date: 20150528
  Serious: Yes (Other)
  Sender: FDA-Public Use
  Company Number: US-TEVA-514731USA

PATIENT
  Sex: Female

DRUGS (1)
  1. COPAXONE [Suspect]
     Active Substance: GLATIRAMER ACETATE
     Route: 065
     Dates: start: 200612, end: 200712

REACTIONS (8)
  - Neuropathy peripheral [Unknown]
  - Hypoaesthesia [Unknown]
  - Malaise [Unknown]
  - JC virus test positive [Unknown]
  - Paraesthesia [Unknown]
  - Alopecia [Unknown]
  - Madarosis [Unknown]
  - Skin disorder [Unknown]
